FAERS Safety Report 5724071-5 (Version None)
Quarter: 2008Q2

REPORT INFORMATION
  Report Type: 
  Country: None (occurrence: None)
  Receive Date: 20080430
  Receipt Date: 20080424
  Transmission Date: 20081010
  Serious: Yes (Hospitalization)
  Sender: FDA-Public Use
  Company Number: JP-BOEHRINGER INGELHEIM GMBH, GERMANY-2008-BP-06733NB

PATIENT
  Age: 95 Year
  Sex: Female

DRUGS (6)
  1. MICARDIS [Suspect]
     Indication: HYPERTENSION
     Route: 048
     Dates: end: 20080412
  2. NORVASC [Concomitant]
     Route: 048
     Dates: end: 20080412
  3. MAGMITT [Concomitant]
     Route: 048
     Dates: end: 20080412
  4. CERENAMELIN [Concomitant]
     Route: 048
     Dates: end: 20080412
  5. TOWAZUREN [Concomitant]
     Route: 048
     Dates: end: 20080412
  6. KETOPROFEN [Concomitant]
     Route: 062

REACTIONS (1)
  - HYPOGLYCAEMIA [None]
